FAERS Safety Report 5834755-6 (Version None)
Quarter: 2008Q3

REPORT INFORMATION
  Report Type: 
  Country: None (occurrence: None)
  Receive Date: 20080801
  Receipt Date: 20080722
  Transmission Date: 20090109
  Serious: Yes (Life-Threatening, Hospitalization)
  Sender: FDA-Public Use
  Company Number: 2008-02417

PATIENT
  Age: 77 Year
  Sex: Male
  Weight: 79.6 kg

DRUGS (18)
  1. VELCADE [Suspect]
     Indication: LYMPHOMA
     Dosage: 2.8 MG, INTRAVENOUS
     Route: 042
     Dates: start: 20080226, end: 20080307
  2. AMPHO-MORONAL (AMPHOTERICIN B) [Concomitant]
  3. PROZAC [Concomitant]
  4. PANTOPRAZOLE SODIUM [Concomitant]
  5. LEVOFLOXACIN [Concomitant]
  6. TORSEMIDE [Concomitant]
  7. DECTAN (DEXAMETHASONE ACETATE) [Concomitant]
  8. ACETYLCYSTEINE [Concomitant]
  9. LORZAAR (LOSARTAN POTASSIUM) [Concomitant]
  10. PROTAPHAN (INSULIN ISOPHANE, HUMAN BIOSYNTHETIC) [Concomitant]
  11. DIGIMERCK(DIGITOXIN) [Concomitant]
  12. PENTALOG (PENTAERITHRITYL TETRANITRATE) [Concomitant]
  13. TAMSULOSIN HCL [Concomitant]
  14. MADOPAR (LEVODOPA, BENSERAZIDE HYDROCHLORIDE) [Concomitant]
  15. EREMFAT (RIFAMPICIN SODIUM) [Concomitant]
  16. METOPROLOL SUCCINATE [Concomitant]
  17. ACTRAPID (INSULIN) [Concomitant]
  18. ENOXAPARIN SODIUM [Concomitant]

REACTIONS (2)
  - DYSPNOEA [None]
  - RESPIRATORY FAILURE [None]
